FAERS Safety Report 13913298 (Version 1)
Quarter: 2017Q3

REPORT INFORMATION
  Report Type: Spontaneous
  Country: US (occurrence: US)
  Receive Date: 20170828
  Receipt Date: 20170828
  Transmission Date: 20171127
  Serious: No
  Sender: FDA-Public Use
  Company Number: US-ROCHE-1125461

PATIENT
  Age: 17 Year

DRUGS (4)
  1. SYNTHROID [Concomitant]
     Active Substance: LEVOTHYROXINE SODIUM
     Route: 065
  2. NUTROPIN [Suspect]
     Active Substance: SOMATROPIN
     Indication: HYPOPITUITARISM
     Route: 065
  3. TESTOSTERONE. [Concomitant]
     Active Substance: TESTOSTERONE
     Dosage: EVERY OTHER WEEK
     Route: 065
  4. PROTROPIN [Concomitant]
     Active Substance: SOMATREM
     Dosage: IN SIX DIVIDED DOSES
     Route: 065

REACTIONS (3)
  - Oropharyngeal pain [Unknown]
  - Orthostatic hypotension [Unknown]
  - Pain in extremity [Unknown]

NARRATIVE: CASE EVENT DATE: 20010418
